FAERS Safety Report 7819742-0 (Version None)
Quarter: 2011Q4

REPORT INFORMATION
  Report Type: 
  Country: None (occurrence: None)
  Receive Date: 20111018
  Receipt Date: 20101001
  Transmission Date: 20120403
  Serious: No
  Sender: FDA-Public Use
  Company Number: US-ASTRAZENECA-2010SE46444

PATIENT
  Age: 50 Year
  Sex: Female
  Weight: 43.1 kg

DRUGS (7)
  1. SYMBICORT [Suspect]
     Dosage: 160/4.5 UG DAILY
     Route: 055
     Dates: start: 20100101
  2. GABAPENTIN [Concomitant]
  3. VENTOLIN [Concomitant]
     Indication: CHRONIC OBSTRUCTIVE PULMONARY DISEASE
     Dosage: TWICE A DAY
  4. SYMBICORT [Suspect]
     Indication: CHRONIC OBSTRUCTIVE PULMONARY DISEASE
     Dosage: 160/4.5 UG TWICE A DAY
     Route: 055
  5. NEXIUM [Suspect]
     Indication: ABDOMINAL DISCOMFORT
     Route: 048
     Dates: start: 20070101
  6. SEROQUEL [Suspect]
     Indication: NEGATIVE THOUGHTS
     Dosage: AT NIGHT
     Route: 048
  7. PROZAC [Concomitant]
     Indication: MENTAL DISORDER

REACTIONS (4)
  - ORAL PAIN [None]
  - RASH [None]
  - FALL [None]
  - NEUROPATHY PERIPHERAL [None]
